FAERS Safety Report 10925579 (Version 1)
Quarter: 2015Q1

REPORT INFORMATION
  Report Type: Spontaneous
  Country: US (occurrence: None)
  Receive Date: 20150316
  Receipt Date: 20150316
  Transmission Date: 20150721
  Serious: No
  Sender: FDA-Public Use
  Company Number: None

PATIENT
  Age: 67 Year
  Weight: 77.11 kg

DRUGS (1)
  1. LEVOTHROID [Suspect]
     Active Substance: LEVOTHYROXINE SODIUM
     Indication: THYROID DISORDER
     Route: 048

REACTIONS (5)
  - Product solubility abnormal [None]
  - Product quality issue [None]
  - Ageusia [None]
  - Dry mouth [None]
  - Product taste abnormal [None]

NARRATIVE: CASE EVENT DATE: 20150201
